FAERS Safety Report 19929707 (Version 1)
Quarter: 2021Q4

REPORT INFORMATION
  Report Type: Report from Study
  Country: IT (occurrence: IT)
  Receive Date: 20211007
  Receipt Date: 20211007
  Transmission Date: 20220304
  Serious: Yes (Death, Other)
  Sender: FDA-Public Use
  Company Number: IT-JAZZ-2021-IT-018336

PATIENT
  Age: 49 Year

DRUGS (1)
  1. DEFITELIO [Suspect]
     Active Substance: DEFIBROTIDE SODIUM
     Indication: Venoocclusive disease
     Dosage: THERAPY DETAILS NOT PROVIDED
     Route: 065
     Dates: start: 20210327, end: 20210405

REACTIONS (1)
  - Death [Fatal]
